FAERS Safety Report 15655683 (Version 1)
Quarter: 2018Q4

REPORT INFORMATION
  Report Type: Report from Study
  Country: CA (occurrence: CA)
  Receive Date: 20181126
  Receipt Date: 20181126
  Transmission Date: 20190205
  Serious: Yes (Other)
  Sender: FDA-Public Use
  Company Number: CA-BRISTOL-MYERS SQUIBB COMPANY-BMS-2018-104293

PATIENT
  Sex: Female

DRUGS (1)
  1. ABATACEPT [Suspect]
     Active Substance: ABATACEPT
     Indication: RHEUMATOID ARTHRITIS
     Dosage: 750 MG, Q4WK
     Route: 042
     Dates: start: 20181004, end: 20181114

REACTIONS (6)
  - Paraesthesia [Unknown]
  - Hypersensitivity [Unknown]
  - Rash macular [Unknown]
  - Pruritus [Unknown]
  - Fall [Unknown]
  - Abdominal pain upper [Unknown]
